FAERS Safety Report 13272882 (Version 1)
Quarter: 2017Q1

REPORT INFORMATION
  Report Type: Spontaneous
  Country: US (occurrence: US)
  Receive Date: 20170227
  Receipt Date: 20170227
  Transmission Date: 20170428
  Serious: No
  Sender: FDA-Public Use
  Company Number: US-PFIZER INC-2017081457

PATIENT
  Sex: Female

DRUGS (2)
  1. XELJANZ XR [Suspect]
     Active Substance: TOFACITINIB CITRATE
     Dosage: 11 MG, UNK
  2. METHOTREXATE SODIUM. [Suspect]
     Active Substance: METHOTREXATE SODIUM
     Dosage: UNK

REACTIONS (21)
  - Dry mouth [Unknown]
  - Flatulence [Unknown]
  - Psoriasis [Recovered/Resolved]
  - Fatigue [Unknown]
  - Tinnitus [Unknown]
  - Abdominal pain [Unknown]
  - Balance disorder [Unknown]
  - Joint range of motion decreased [Unknown]
  - Malaise [Unknown]
  - Depression [Unknown]
  - Memory impairment [Unknown]
  - Dizziness [Unknown]
  - Tenderness [Unknown]
  - Muscle rigidity [Unknown]
  - Dry eye [Unknown]
  - Headache [Unknown]
  - Pain [Unknown]
  - Constipation [Unknown]
  - Tendonitis [Unknown]
  - Dyspepsia [Unknown]
  - Sexual dysfunction [Unknown]
